FAERS Safety Report 10415029 (Version 1)
Quarter: 2014Q2

REPORT INFORMATION
  Report Type: Spontaneous
  Country: US (occurrence: None)
  Receive Date: 20140604
  Receipt Date: 20140604
  Transmission Date: 20141212
  Serious: No
  Sender: FDA-Public Use
  Company Number: 163-POMAL-14030870

PATIENT
  Age: 69 Year
  Sex: Female
  Weight: 56.7 kg

DRUGS (6)
  1. POMALYST (POMALIDOMIDE) (4 MILLIGRAM, CAPSULES) [Suspect]
     Indication: PLASMA CELL MYELOMA
     Dosage: 4 MG, 21 IN 28 D, PO
     Route: 048
     Dates: start: 20140203
  2. DECADRON (DEXAMETHASONE) [Concomitant]
  3. ECOTRIN (ACETYLSALICYLIC ACID) [Concomitant]
  4. MULTIVITAMINS [Concomitant]
  5. FLUCONAZOLE [Concomitant]
  6. NALTREXONE HCL [Concomitant]

REACTIONS (2)
  - Drug intolerance [None]
  - Fatigue [None]
